FAERS Safety Report 13736311 (Version 1)
Quarter: 2017Q3

REPORT INFORMATION
  Report Type: Spontaneous
  Country: US (occurrence: US)
  Receive Date: 20170710
  Receipt Date: 20170710
  Transmission Date: 20171127
  Serious: Yes (Other)
  Sender: FDA-Public Use
  Company Number: None

PATIENT
  Age: 68 Year
  Sex: Female
  Weight: 64.01 kg

DRUGS (1)
  1. PRALUENT [Suspect]
     Active Substance: ALIROCUMAB
     Indication: HYPERCHOLESTEROLAEMIA
     Route: 058
     Dates: start: 20170514, end: 20170531

REACTIONS (8)
  - Diarrhoea [None]
  - Influenza [None]
  - Depression [None]
  - Visual impairment [None]
  - Toxicity to various agents [None]
  - Confusional state [None]
  - Malaise [None]
  - Macular degeneration [None]

NARRATIVE: CASE EVENT DATE: 20170514
